FAERS Safety Report 7792383-X (Version None)
Quarter: 2011Q4

REPORT INFORMATION
  Report Type: 
  Country: None (occurrence: None)
  Receive Date: 20111003
  Receipt Date: 20110920
  Transmission Date: 20120403
  Serious: No
  Sender: FDA-Public Use
  Company Number: US-B.I. PHARMACEUTICALS,INC./RIDGEFIELD-2011-BP-20557BP

PATIENT
  Age: 68 Year
  Sex: Female

DRUGS (9)
  1. FUROSEMIDE [Concomitant]
     Indication: FLUID RETENTION
  2. COMBIVENT [Suspect]
     Indication: CHRONIC OBSTRUCTIVE PULMONARY DISEASE
  3. HUMALOG [Concomitant]
     Indication: DIABETES MELLITUS
  4. FISH OIL [Concomitant]
     Indication: SUPPLEMENTATION THERAPY
  5. PRILOSEC [Concomitant]
     Indication: ABDOMINAL DISCOMFORT
  6. VITAMIN TAB [Concomitant]
     Indication: SUPPLEMENTATION THERAPY
  7. METOPROLOL TARTRATE [Concomitant]
     Indication: HYPERTENSION
  8. LEVEMIR [Concomitant]
     Indication: DIABETES MELLITUS
  9. COMBIVENT [Suspect]
     Indication: BRONCHITIS
     Route: 055
     Dates: start: 20060101

REACTIONS (2)
  - DYSGEUSIA [None]
  - THROAT IRRITATION [None]
